FAERS Safety Report 16667840 (Version 2)
Quarter: 2019Q3

REPORT INFORMATION
  Report Type: Spontaneous
  Country: LB (occurrence: US)
  Receive Date: 20190805
  Receipt Date: 20190816
  Transmission Date: 20191004
  Serious: Yes (Other)
  Sender: FDA-Public Use
  Company Number: PHHY2019LB175778

PATIENT
  Age: 65 Year
  Sex: Male

DRUGS (4)
  1. MEKINIST [Suspect]
     Active Substance: TRAMETINIB DIMETHYL SULFOXIDE
     Indication: OCULAR LYMPHOMA
     Dosage: UNK
     Route: 065
  2. ORENCIA [Concomitant]
     Active Substance: ABATACEPT
     Indication: RHEUMATOID ARTHRITIS
     Route: 065
  3. BENDEKA [Concomitant]
     Active Substance: BENDAMUSTINE HYDROCHLORIDE
     Indication: OCULAR LYMPHOMA
     Route: 065
  4. RITUXAN [Concomitant]
     Active Substance: RITUXIMAB
     Indication: OCULAR LYMPHOMA
     Route: 065

REACTIONS (13)
  - Myositis [Recovering/Resolving]
  - Myocarditis [Recovering/Resolving]
  - Toxoplasmosis [Recovering/Resolving]
  - Encephalitis [Recovering/Resolving]
  - Retinitis [Recovering/Resolving]
  - Motor dysfunction [Recovering/Resolving]
  - Orthopnoea [Recovering/Resolving]
  - Chest discomfort [Recovering/Resolving]
  - Pleocytosis [Recovering/Resolving]
  - Dyspnoea [Recovering/Resolving]
  - Gait disturbance [Recovering/Resolving]
  - Ventricular hypokinesia [Recovering/Resolving]
  - Product use in unapproved indication [Unknown]
